FAERS Safety Report 7287138-9 (Version None)
Quarter: 2011Q1

REPORT INFORMATION
  Report Type: 
  Country: None (occurrence: None)
  Receive Date: 20110211
  Receipt Date: 20110126
  Transmission Date: 20110831
  Serious: Yes (Other)
  Sender: FDA-Public Use
  Company Number: JP-ROCHE-743967

PATIENT
  Sex: Male
  Weight: 75 kg

DRUGS (18)
  1. ACTEMRA [Suspect]
     Route: 041
     Dates: start: 20100215, end: 20100215
  2. PARIET [Suspect]
     Indication: RHEUMATOID ARTHRITIS
     Route: 048
  3. BONALON [Concomitant]
     Route: 048
  4. PREDNISOLONE [Suspect]
     Route: 048
     Dates: start: 20100316, end: 20100510
  5. PROGRAFT [Concomitant]
     Dosage: PERORAL AGENT
     Route: 048
  6. LOBU [Concomitant]
     Route: 048
  7. FLUITRAN [Concomitant]
     Route: 048
  8. ACTEMRA [Suspect]
     Route: 041
     Dates: start: 20091214, end: 20091214
  9. RHEUMATREX [Concomitant]
     Route: 048
  10. ACTEMRA [Suspect]
     Route: 041
     Dates: start: 20100510, end: 20101025
  11. ACTEMRA [Suspect]
     Indication: RHEUMATOID ARTHRITIS
     Route: 041
     Dates: start: 20091109, end: 20091109
  12. ACTEMRA [Suspect]
     Route: 041
     Dates: start: 20100315, end: 20100315
  13. ACTEMRA [Suspect]
     Route: 041
     Dates: start: 20100412, end: 20100412
  14. PREDNISOLONE [Suspect]
     Route: 048
     Dates: start: 20100119, end: 20100315
  15. PREDNISOLONE [Suspect]
     Route: 048
     Dates: start: 20100511
  16. LOXONIN [Suspect]
     Indication: RHEUMATOID ARTHRITIS
     Route: 048
  17. ACTEMRA [Suspect]
     Route: 041
     Dates: start: 20100118, end: 20100118
  18. PREDNISOLONE [Suspect]
     Indication: RHEUMATOID ARTHRITIS
     Route: 048
     Dates: end: 20100118

REACTIONS (8)
  - ASPARTATE AMINOTRANSFERASE INCREASED [None]
  - LARGE INTESTINAL ULCER [None]
  - ALANINE AMINOTRANSFERASE INCREASED [None]
  - RECTAL POLYP [None]
  - ANAEMIA [None]
  - NEUTROPHIL COUNT DECREASED [None]
  - LYMPHOCYTE COUNT INCREASED [None]
  - DIVERTICULITIS [None]
